FAERS Safety Report 24868049 (Version 1)
Quarter: 2025Q1

REPORT INFORMATION
  Report Type: Spontaneous
  Country: US (occurrence: None)
  Receive Date: 20250120
  Receipt Date: 20250120
  Transmission Date: 20250409
  Serious: No
  Sender: FDA-CTU
  Company Number: None

PATIENT
  Age: 49 Year
  Sex: Female
  Weight: 112.95 kg

DRUGS (11)
  1. TRELEGY ELLIPTA [Suspect]
     Active Substance: FLUTICASONE FUROATE\UMECLIDINIUM BROMIDE\VILANTEROL TRIFENATATE
     Indication: Asthma
     Dosage: 1 INHALATION DAILY RESPIRATORY(INHALATION)
     Route: 055
     Dates: start: 20250117, end: 20250117
  2. PANTOPRAZOLE [Concomitant]
     Active Substance: PANTOPRAZOLE
  3. PEPCID [Concomitant]
     Active Substance: FAMOTIDINE
  4. AMLODIPINE [Concomitant]
     Active Substance: AMLODIPINE BESYLATE
  5. LOSARTAN [Concomitant]
     Active Substance: LOSARTAN
  6. SINGULAIR [Concomitant]
     Active Substance: MONTELUKAST SODIUM
  7. carafat [Concomitant]
  8. TYLENOL [Concomitant]
     Active Substance: ACETAMINOPHEN
  9. vitamins b [Concomitant]
  10. vitamins d [Concomitant]
  11. PROBIOTICS NOS [Concomitant]
     Active Substance: PROBIOTICS NOS

REACTIONS (7)
  - Head discomfort [None]
  - Burning sensation [None]
  - Ocular discomfort [None]
  - Tremor [None]
  - Tremor [None]
  - Pruritus [None]
  - Heart rate increased [None]

NARRATIVE: CASE EVENT DATE: 20250117
